FAERS Safety Report 9131712 (Version 1)
Quarter: 2013Q1

REPORT INFORMATION
  Report Type: Spontaneous
  Country: US (occurrence: US)
  Receive Date: 20130301
  Receipt Date: 20130301
  Transmission Date: 20140127
  Serious: No
  Sender: FDA-Public Use
  Company Number: US-MYLANLABS-2012S1011811

PATIENT
  Age: 20 Year
  Sex: Female

DRUGS (2)
  1. AMNESTEEM CAPSULES [Suspect]
     Indication: ACNE
     Dosage: EXCEPT SUNDAYS TAKES 80MG
     Route: 048
     Dates: start: 20120227, end: 20120530
  2. AMNESTEEM CAPSULES [Suspect]
     Indication: ACNE
     Dosage: EXCEPT SUNDAYS TAKES 80MG
     Route: 048
     Dates: start: 20120227, end: 20120530

REACTIONS (1)
  - Chest pain [Recovered/Resolved]
